FAERS Safety Report 9399716 (Version 3)
Quarter: 2014Q1

REPORT INFORMATION
  Report Type: Report from Study
  Country: ES (occurrence: ES)
  Receive Date: 20130715
  Receipt Date: 20140321
  Transmission Date: 20141002
  Serious: Yes (Hospitalization)
  Sender: FDA-Public Use
  Company Number: ES-EISAI INC-E7389-04009-CLI-ES

PATIENT
  Age: 67 Year
  Sex: Male

DRUGS (6)
  1. ERIBULIN [Suspect]
     Indication: BLADDER CANCER
     Dosage: 1.0 MG/M2 (1.85 MG)
     Route: 041
     Dates: start: 20130314, end: 20131205
  2. GEMCITABINE [Suspect]
     Indication: BLADDER CANCER
     Dosage: 1000 MG/M2 (1848 MG)
     Route: 041
     Dates: start: 20130314, end: 20130705
  3. CISPLATIN [Suspect]
     Indication: BLADDER CANCER
     Dosage: 70 MG/M2 (129 MG)
     Route: 041
     Dates: start: 20130314, end: 20130628
  4. OMEPRAZOL [Concomitant]
     Indication: PROPHYLAXIS
     Dosage: UNKNOWN
     Route: 048
  5. MIRTAZAPINA [Concomitant]
     Indication: DEPRESSION
     Dosage: UNKNOWN
     Route: 048
  6. ESCITALOPRAM [Concomitant]
     Indication: DEPRESSION
     Dosage: UNKNOWN
     Route: 048

REACTIONS (1)
  - Presyncope [Recovered/Resolved]
